FAERS Safety Report 19457576 (Version 2)
Quarter: 2021Q2

REPORT INFORMATION
  Report Type: Spontaneous
  Country: IT (occurrence: IT)
  Receive Date: 20210624
  Receipt Date: 20210625
  Transmission Date: 20210717
  Serious: Yes (Hospitalization)
  Sender: FDA-Public Use
  Company Number: IT-SUN PHARMACEUTICAL INDUSTRIES LTD-2021RR-301849

PATIENT
  Age: 67 Year
  Sex: Male

DRUGS (3)
  1. CAPECITABINA ACCORD [Suspect]
     Active Substance: CAPECITABINE
     Indication: COLON CANCER
     Dosage: 2000 MILLIGRAM, CYCLICAL
     Route: 048
     Dates: start: 20210504
  2. MITOMYCIN. [Concomitant]
     Active Substance: MITOMYCIN
     Indication: BLADDER NEOPLASM
     Dosage: 40 MILLIGRAM, CYCLICAL
     Route: 043
     Dates: start: 20210524, end: 20210524
  3. OXALIPLATINO SUN 5 MG/ML, CONCENTRATO PER SOLUZIONE PER INFUSIONE [Suspect]
     Active Substance: OXALIPLATIN
     Indication: COLON CANCER
     Dosage: 260 MILLIGRAM, CYCLICAL
     Route: 042
     Dates: start: 20210504

REACTIONS (3)
  - Respiratory failure [Recovering/Resolving]
  - Angioedema [Recovering/Resolving]
  - Drug hypersensitivity [Recovering/Resolving]

NARRATIVE: CASE EVENT DATE: 20210524
